FAERS Safety Report 16323343 (Version 1)
Quarter: 2019Q2

REPORT INFORMATION
  Report Type: Spontaneous
  Country: GB (occurrence: GB)
  Receive Date: 20190517
  Receipt Date: 20190517
  Transmission Date: 20190711
  Serious: Yes (Other)
  Sender: FDA-Public Use
  Company Number: GB-ROCHE-2319173

PATIENT
  Sex: Female
  Weight: 13.5 kg

DRUGS (5)
  1. DIAZEPAM. [Suspect]
     Active Substance: DIAZEPAM
     Dosage: IN 5 HOURS
     Route: 042
  2. DEXTROSE. [Concomitant]
     Active Substance: DEXTROSE
     Route: 065
  3. DIAZEPAM. [Suspect]
     Active Substance: DIAZEPAM
     Dosage: 1.25 HOUR LATER INJECTION OF DIAZEPAM FOR 3 HOURS (10 MG IN 3 HOURS)
     Route: 042
  4. CORAMINE [Concomitant]
  5. DIAZEPAM. [Suspect]
     Active Substance: DIAZEPAM
     Indication: STATUS EPILEPTICUS
     Route: 042

REACTIONS (1)
  - Respiratory arrest [Recovered/Resolved]
